FAERS Safety Report 13764465 (Version 2)
Quarter: 2017Q4

REPORT INFORMATION
  Report Type: Spontaneous
  Country: US (occurrence: US)
  Receive Date: 20170718
  Receipt Date: 20171017
  Transmission Date: 20180320
  Serious: No
  Sender: FDA-Public Use
  Company Number: US-NOVOPROD-549013

PATIENT
  Age: 69 Year
  Sex: Male

DRUGS (3)
  1. GLIMEPIRIDE. [Suspect]
     Active Substance: GLIMEPIRIDE
     Dosage: 2 MG, QD
     Route: 058
  2. TRESIBA [Suspect]
     Active Substance: INSULIN DEGLUDEC
     Indication: TYPE 2 DIABETES MELLITUS
     Dosage: 10 U, QD
     Route: 058
     Dates: start: 20170530, end: 20170605
  3. GLIMEPIRIDE. [Suspect]
     Active Substance: GLIMEPIRIDE
     Indication: PRODUCT USED FOR UNKNOWN INDICATION
     Dosage: 4 MG, QD
     Route: 058

REACTIONS (4)
  - Testicular pain [Recovered/Resolved]
  - Lymphadenopathy [Recovered/Resolved]
  - Blood glucose increased [Not Recovered/Not Resolved]
  - Unevaluable event [Unknown]

NARRATIVE: CASE EVENT DATE: 20170603
